FAERS Safety Report 22172367 (Version 4)
Quarter: 2023Q2

REPORT INFORMATION
  Report Type: Spontaneous
  Country: US (occurrence: US)
  Receive Date: 20230404
  Receipt Date: 20230412
  Transmission Date: 20230722
  Serious: Yes (Other)
  Sender: FDA-Public Use
  Company Number: US-PFIZER INC-PV202300059226

PATIENT
  Age: 69 Year
  Sex: Male

DRUGS (2)
  1. INLYTA [Suspect]
     Active Substance: AXITINIB
     Indication: Renal cancer stage IV
     Dosage: 7 G, 2X/DAY
     Route: 048
  2. INLYTA [Suspect]
     Active Substance: AXITINIB
     Indication: Lung cancer metastatic
     Dosage: 5 MG, 2X/DAY (TAKE 1 TABLET EVERY 12 HOURS. SWALLOW WHOLE WITH A FULL GLASS OF WATER)
     Route: 048

REACTIONS (18)
  - Arrhythmia [Unknown]
  - Overdose [Unknown]
  - Diarrhoea [Recovering/Resolving]
  - Vomiting [Recovering/Resolving]
  - Asthenia [Unknown]
  - Fatigue [Unknown]
  - Cold sweat [Unknown]
  - Peripheral coldness [Unknown]
  - Heart sounds abnormal [Unknown]
  - Weight decreased [Unknown]
  - Heart rate irregular [Unknown]
  - Palpitations [Unknown]
  - Oedema peripheral [Unknown]
  - Cough [Unknown]
  - Dyspnoea [Unknown]
  - Lethargy [Unknown]
  - Malaise [Unknown]
  - Skin disorder [Unknown]

NARRATIVE: CASE EVENT DATE: 20230201
